FAERS Safety Report 5134511-0 (Version None)
Quarter: 2006Q4

REPORT INFORMATION
  Report Type: 
  Country: None (occurrence: None)
  Receive Date: 20061025
  Receipt Date: 20061013
  Transmission Date: 20070319
  Serious: Yes (Hospitalization)
  Sender: FDA-Public Use
  Company Number: FR-JNJFOC-20061003585

PATIENT
  Sex: Male

DRUGS (4)
  1. RISPERDAL [Suspect]
     Indication: ABNORMAL BEHAVIOUR
     Route: 048
  2. RISPERDAL [Suspect]
     Indication: AGGRESSION
     Route: 048
  3. DEPAKENE [Concomitant]
     Route: 065
  4. TERCIAN [Concomitant]
     Route: 065

REACTIONS (2)
  - CYTOLYTIC HEPATITIS [None]
  - TOXIC SKIN ERUPTION [None]
